FAERS Safety Report 9767847 (Version 1)
Quarter: 2013Q4

REPORT INFORMATION
  Report Type: Spontaneous
  Country: US (occurrence: None)
  Receive Date: 20131213
  Receipt Date: 20131213
  Transmission Date: 20140711
  Serious: Yes (Other)
  Sender: FDA-Public Use
  Company Number: AMIT20130035

PATIENT
  Age: 47 Year
  Sex: Female

DRUGS (4)
  1. AMITRIPTYLINE HCL [Suspect]
     Indication: PRODUCT USED FOR UNKNOWN INDICATION
  2. HYDROCODONE BITARTRATE/ACETAMINOPHEN (PARACETAMOL, HYDROCODONE [Concomitant]
  3. DIPHENHYDRAMINE (DIPHENHYDRAMINE CAPSULES) (DIPHENHYDRAMINE) [Concomitant]
  4. MELOXICAM (MELOXICAM) [Concomitant]

REACTIONS (1)
  - Retinopathy [None]
